FAERS Safety Report 9432643 (Version 2)
Quarter: 2013Q3

REPORT INFORMATION
  Report Type: Spontaneous
  Country: AT (occurrence: AT)
  Receive Date: 20130731
  Receipt Date: 20130815
  Transmission Date: 20140515
  Serious: Yes (Other)
  Sender: FDA-Public Use
  Company Number: PHHY2013AT080084

PATIENT
  Sex: Male

DRUGS (10)
  1. ACLASTA [Suspect]
     Indication: OSTEOPOROSIS
     Dosage: 5MG/100ML, ONCE PER YEAR
     Route: 042
  2. ACLASTA [Suspect]
     Dosage: 5MG/100ML, ONCE PER YEAR
     Route: 042
     Dates: start: 20130611
  3. ACCUZIDE [Concomitant]
     Indication: HYPERTENSION
     Dosage: UNK, QD
     Route: 048
  4. CLOPIDOGREL [Concomitant]
     Indication: CAROTID ARTERY STENOSIS
     Dosage: UNK, QD
     Route: 048
  5. CRESTOR [Concomitant]
     Indication: METABOLIC SYNDROME
     Dosage: UNK UKN, QD
  6. ITERIUM [Concomitant]
     Indication: HYPERTENSION
     Dosage: UNK UKN, QD
  7. METFORMIN [Concomitant]
     Indication: DIABETES MELLITUS
     Dosage: UNK UKN, QD
     Route: 048
  8. NEBIVOLOL [Concomitant]
     Indication: HYPERTENSION
     Dosage: 0.5 UKN, QD
  9. OLEOVIT D3 [Concomitant]
     Indication: OSTEOPOROSIS
     Dosage: 1 UKN, WEEKLY
  10. PANTOPRAZOL [Concomitant]
     Indication: GASTROOESOPHAGEAL REFLUX DISEASE
     Dosage: UNK UKN, QD

REACTIONS (4)
  - Osteonecrosis of jaw [Not Recovered/Not Resolved]
  - Oral mucosal erythema [Unknown]
  - Local swelling [Unknown]
  - Exposed bone in jaw [Unknown]
